FAERS Safety Report 20333426 (Version 1)
Quarter: 2022Q1

REPORT INFORMATION
  Report Type: Other
  Country: SI (occurrence: None)
  Receive Date: 20220113
  Receipt Date: 20220113
  Transmission Date: 20220423
  Serious: Yes (Other)
  Sender: FDA-Public Use
  Company Number: SI-Merck Healthcare KGaA-9272505

PATIENT
  Sex: Female
  Weight: 63 kg

DRUGS (1)
  1. EUTHYROX [Suspect]
     Active Substance: LEVOTHYROXINE SODIUM
     Indication: Thyroid disorder
     Dosage: NEW FORMULATION

REACTIONS (6)
  - Hallucination [Unknown]
  - Asthenia [Unknown]
  - Vasculitis [Unknown]
  - Swelling [Recovered/Resolved]
  - Thyroid disorder [Unknown]
  - Weight increased [Recovered/Resolved]
